FAERS Safety Report 9779823 (Version 1)
Quarter: 2013Q4

REPORT INFORMATION
  Report Type: Spontaneous
  Country: CH (occurrence: CH)
  Receive Date: 20131223
  Receipt Date: 20131223
  Transmission Date: 20140711
  Serious: Yes (Hospitalization)
  Sender: FDA-Public Use
  Company Number: CH-GLAXOSMITHKLINE-B0955026A

PATIENT
  Age: 69 Year
  Sex: Male

DRUGS (6)
  1. VOTRIENT [Suspect]
     Indication: CARCINOMA IN SITU
     Dosage: 800MG PER DAY
     Route: 048
     Dates: start: 201207, end: 20131122
  2. BELOC [Concomitant]
  3. SAROTEN [Concomitant]
  4. PANTOZOL [Concomitant]
  5. EFEXOR [Concomitant]
  6. SERESTA [Concomitant]

REACTIONS (4)
  - Pulmonary embolism [Recovering/Resolving]
  - Dyspnoea [Recovered/Resolved]
  - Sinus tachycardia [Recovered/Resolved]
  - Circulatory collapse [Recovered/Resolved]
